FAERS Safety Report 20497358 (Version 1)
Quarter: 2022Q1

REPORT INFORMATION
  Report Type: Report from Study
  Country: US (occurrence: US)
  Receive Date: 20220221
  Receipt Date: 20220221
  Transmission Date: 20220423
  Serious: Yes (Death, Other)
  Sender: FDA-Public Use
  Company Number: US-UCBSA-2022007761

PATIENT
  Sex: Female

DRUGS (1)
  1. LACOSAMIDE [Suspect]
     Active Substance: LACOSAMIDE
     Indication: Seizure
     Dosage: 200 MILLIGRAM, 2X/DAY (BID)
     Dates: end: 20211208

REACTIONS (6)
  - Brain neoplasm [Fatal]
  - Brain tumour operation [Unknown]
  - Seizure [Unknown]
  - Pain [Unknown]
  - Neoplasm [Unknown]
  - Swelling [Unknown]
